FAERS Safety Report 8005655-0 (Version None)
Quarter: 2011Q4

REPORT INFORMATION
  Report Type: 
  Country: None (occurrence: None)
  Receive Date: 20111223
  Receipt Date: 20111219
  Transmission Date: 20120403
  Serious: Yes (Other)
  Sender: FDA-Public Use
  Company Number: CHPA2011US018384

PATIENT
  Age: 53 Year
  Sex: Female

DRUGS (2)
  1. DOAN'S P.M. CAPLETS [Suspect]
     Indication: BACK PAIN
     Dosage: 2 DF AS NEEDED, ABOUT TWICE PER MONTH
     Route: 048
  2. DOAN'S EXTRA STRENGTH PILLS [Suspect]
     Indication: BACK PAIN
     Dosage: 2 DF AS NEEDED, ABOUT TWICE PER MONTH
     Route: 048

REACTIONS (6)
  - CHRONIC OBSTRUCTIVE PULMONARY DISEASE [None]
  - DRY EYE [None]
  - GASTROINTESTINAL DISORDER [None]
  - OFF LABEL USE [None]
  - EXPIRED DRUG ADMINISTERED [None]
  - URINARY TRACT INFECTION [None]
